FAERS Safety Report 20482685 (Version 1)
Quarter: 2022Q1

REPORT INFORMATION
  Report Type: Spontaneous
  Country: AR (occurrence: AR)
  Receive Date: 20220217
  Receipt Date: 20220217
  Transmission Date: 20220423
  Serious: Yes (Hospitalization, Other)
  Sender: FDA-Public Use
  Company Number: AR-NOVARTISPH-NVSC2022AR033171

PATIENT
  Age: 89 Year
  Sex: Female

DRUGS (2)
  1. ENTRESTO [Suspect]
     Active Substance: SACUBITRIL\VALSARTAN
     Indication: Cardiac failure
     Dosage: 100 MG, QD (2 X 50 MG) (STOP DATE: A YEAR AGO)
     Route: 065
     Dates: start: 201909
  2. ENTRESTO [Suspect]
     Active Substance: SACUBITRIL\VALSARTAN
     Dosage: 200 MG, QD (2 X 100 MG) (START DATE: APPROXIMATELY A YEAR AGO)
     Route: 065

REACTIONS (10)
  - Pulmonary oedema [Unknown]
  - Blood glucose abnormal [Unknown]
  - Diabetes mellitus [Unknown]
  - Arrhythmia [Unknown]
  - Lumbar spinal stenosis [Unknown]
  - Scoliosis [Unknown]
  - Gait disturbance [Unknown]
  - Myocardial fibrosis [Unknown]
  - Fatigue [Unknown]
  - Inappropriate schedule of product administration [Unknown]
